FAERS Safety Report 7841060-5 (Version None)
Quarter: 2011Q4

REPORT INFORMATION
  Report Type: 
  Country: None (occurrence: None)
  Receive Date: 20111020
  Receipt Date: 20111007
  Transmission Date: 20120403
  Serious: Yes (Hospitalization, Disabling, Other)
  Sender: FDA-Public Use
  Company Number: 2009AL007730

PATIENT
  Age: 35 Year
  Sex: Female
  Weight: 52.6173 kg

DRUGS (88)
  1. KEFLEX [Concomitant]
  2. MESALAMINE [Concomitant]
  3. MIGRANAL [Concomitant]
  4. PANCREAZE [Concomitant]
  5. POLYETHYLENE GLYCOL [Concomitant]
  6. PLAQUENIL [Concomitant]
  7. SOLU-MEDROL [Concomitant]
  8. TRETINOIN [Concomitant]
  9. ALPRAZOLAM [Concomitant]
  10. AMBIEN [Concomitant]
  11. DEMEROL [Concomitant]
  12. FENTANYL-100 [Concomitant]
  13. LYRICA [Concomitant]
  14. PATANOL [Concomitant]
  15. AMBIEN CR [Concomitant]
  16. ARTIFICIAL TEARS [Concomitant]
  17. CLOBETASOL [Concomitant]
  18. CODEINE SUL TAB [Concomitant]
  19. DOXYCYCLINE [Concomitant]
  20. FLUCONAZOLE [Concomitant]
  21. LEXAPRO [Concomitant]
  22. MAGIC MOUTHWASH [Concomitant]
  23. MOTRIN [Concomitant]
  24. NYSTATIN [Concomitant]
  25. POLYSPORIN OINTMENT [Concomitant]
  26. PROMETHAZINE [Concomitant]
  27. RELPAX [Concomitant]
  28. BACTRIM DS [Concomitant]
  29. CYCLOPHOSPHAMIDE [Concomitant]
  30. HYDROCODONE BITARTRATE AND ACETAMINOPHEN [Concomitant]
  31. OPANA [Concomitant]
  32. PANGESTYME EC [Concomitant]
  33. PREVACID [Concomitant]
  34. PROZAC [Concomitant]
  35. SYNTRHOID [Concomitant]
  36. TRIAMCINOLONE [Concomitant]
  37. ACETAMINOPHEN W/ CODEINE TAB [Concomitant]
  38. AZATHIOPRINE [Concomitant]
  39. BENTYL [Concomitant]
  40. CYMBALTA [Concomitant]
  41. DIAZEPAM [Concomitant]
  42. DILAUDID [Concomitant]
  43. MAGNESIUM HYDROXIDE TAB [Concomitant]
  44. MAXALT [Concomitant]
  45. METHOTREXATE [Concomitant]
  46. METHYL TOPICAL [Concomitant]
  47. MIRALAX [Concomitant]
  48. MORPHINE SULFATE [Concomitant]
  49. TRAMADOL HCL [Concomitant]
  50. XOENEX [Concomitant]
  51. ALENDRONATE SODIUM [Concomitant]
  52. AMERGE [Concomitant]
  53. BACTROBAN [Concomitant]
  54. BENADRYL [Concomitant]
  55. CLONAZEPAM [Concomitant]
  56. CLONIDINE [Concomitant]
  57. FLORASTOR [Concomitant]
  58. HYOSCYAMINE [Concomitant]
  59. IRON SULFATETHIAMIN COMPOUND TAB [Concomitant]
  60. LIDODERM [Concomitant]
  61. OXYCONTIN [Concomitant]
  62. TYLENOL-500 [Concomitant]
  63. METOCLOPRAMIDE [Suspect]
     Indication: NAUSEA
     Dosage: 10 MG;QID;PO
     Route: 048
     Dates: start: 20061001, end: 20090701
  64. METOCLOPRAMIDE [Suspect]
     Indication: CROHN'S DISEASE
     Dosage: 10 MG;QID;PO
     Route: 048
     Dates: start: 20061001, end: 20090701
  65. METOCLOPRAMIDE [Suspect]
     Indication: SWELLING
     Dosage: 10 MG;QID;PO
     Route: 048
     Dates: start: 20061001, end: 20090701
  66. METOCLOPRAMIDE [Suspect]
     Indication: ABDOMINAL PAIN
     Dosage: 10 MG;QID;PO
     Route: 048
     Dates: start: 20061001, end: 20090701
  67. CELEBREX [Concomitant]
  68. CLARINEX [Concomitant]
  69. FUROSEMIDE [Concomitant]
  70. IMITREX [Concomitant]
  71. LIDOCAINE OINTMENT [Concomitant]
  72. METRONIDAZOLE [Concomitant]
  73. MYCOLOG [Concomitant]
  74. RIBOSE [Concomitant]
  75. SUBOXONE [Concomitant]
  76. BUTALBITAL ACETAMINOPHEN AND CAFFEINE [Concomitant]
  77. CIPROFLOXACIN [Concomitant]
  78. LORAZEPAM [Concomitant]
  79. NEXIUM [Concomitant]
  80. OXYCODONE HCL AND ACETAMINOPHEN [Concomitant]
  81. OXYCONTIN [Concomitant]
  82. PREDNISONE [Concomitant]
  83. PROAIR HFA [Concomitant]
  84. PROTONIX [Concomitant]
  85. Q-TUSSIN [Concomitant]
  86. RUBINOL [Concomitant]
  87. XYZAL [Concomitant]
  88. ZOFRAN [Concomitant]

REACTIONS (150)
  - NEUROPATHY PERIPHERAL [None]
  - ABDOMINAL TENDERNESS [None]
  - NAUSEA [None]
  - SWELLING [None]
  - INSOMNIA [None]
  - SEDATION [None]
  - ANAEMIA [None]
  - PYREXIA [None]
  - TONGUE DISORDER [None]
  - INFLAMMATION [None]
  - DISTURBANCE IN ATTENTION [None]
  - MOUTH ULCERATION [None]
  - DRY MOUTH [None]
  - SINUS HEADACHE [None]
  - LUPUS ENCEPHALITIS [None]
  - IRRITABLE BOWEL SYNDROME [None]
  - DYSPEPSIA [None]
  - DEHYDRATION [None]
  - ABNORMAL BEHAVIOUR [None]
  - RADIAL NERVE PALSY [None]
  - MOVEMENT DISORDER [None]
  - MENTAL DISORDER [None]
  - ANHEDONIA [None]
  - DEPRESSION [None]
  - DRUG ABUSE [None]
  - HEAD INJURY [None]
  - ABDOMINAL DISTENSION [None]
  - CELLULITIS [None]
  - DEFORMITY [None]
  - SYSTEMIC LUPUS ERYTHEMATOSUS RASH [None]
  - PRURITUS [None]
  - SPEECH DISORDER [None]
  - ARTHROPATHY [None]
  - IMPAIRED HEALING [None]
  - WEIGHT INCREASED [None]
  - INFUSION SITE EXTRAVASATION [None]
  - SKIN LESION [None]
  - CHOREA [None]
  - ALCOHOLISM [None]
  - CEREBROVASCULAR DISORDER [None]
  - HEPATIC STEATOSIS [None]
  - HAEMOGLOBIN DECREASED [None]
  - ACTIVITIES OF DAILY LIVING IMPAIRED [None]
  - CEREBRAL DISORDER [None]
  - SOMATOFORM DISORDER [None]
  - ANXIETY DISORDER [None]
  - CONSTIPATION [None]
  - ABDOMINAL PAIN [None]
  - ARTHRALGIA [None]
  - EYE SWELLING [None]
  - TARDIVE DYSKINESIA [None]
  - WEIGHT BEARING DIFFICULTY [None]
  - GINGIVAL SWELLING [None]
  - AMNESIA [None]
  - SPINAL OSTEOARTHRITIS [None]
  - MYALGIA [None]
  - IMPAIRED GASTRIC EMPTYING [None]
  - SMALL INTESTINAL OBSTRUCTION [None]
  - COMPARTMENT SYNDROME [None]
  - CONJUNCTIVAL HYPERAEMIA [None]
  - ALTERED STATE OF CONSCIOUSNESS [None]
  - PRESCRIPTION FORM TAMPERING [None]
  - EXTRAPYRAMIDAL DISORDER [None]
  - SYSTEMIC LUPUS ERYTHEMATOSUS [None]
  - PELVIC PAIN [None]
  - EXCORIATION [None]
  - MALAISE [None]
  - CRYING [None]
  - SWELLING FACE [None]
  - COUGH [None]
  - PHOTOPHOBIA [None]
  - HYPERHIDROSIS [None]
  - CONFUSIONAL STATE [None]
  - TENSION HEADACHE [None]
  - ALOPECIA [None]
  - WOUND [None]
  - INFUSION SITE INFECTION [None]
  - COGNITIVE DISORDER [None]
  - LOSS OF CONSCIOUSNESS [None]
  - TREATMENT NONCOMPLIANCE [None]
  - SOCIAL AVOIDANT BEHAVIOUR [None]
  - EMOTIONAL DISTRESS [None]
  - DYSTONIA [None]
  - EPILEPSY [None]
  - NEUTROPENIA [None]
  - LEUKOPENIA [None]
  - DENTAL CARIES [None]
  - IRRITABILITY [None]
  - VOMITING [None]
  - YAWNING [None]
  - FALL [None]
  - FATIGUE [None]
  - EYELID PTOSIS [None]
  - MONOPLEGIA [None]
  - MUSCULAR WEAKNESS [None]
  - BALANCE DISORDER [None]
  - WEIGHT DECREASED [None]
  - DEMYELINATION [None]
  - OEDEMA MOUTH [None]
  - SINUS CONGESTION [None]
  - COLONIC POLYP [None]
  - LUPUS ENTERITIS [None]
  - NERVOUS SYSTEM DISORDER [None]
  - PAIN [None]
  - EYE MOVEMENT DISORDER [None]
  - MIGRAINE [None]
  - GASTRITIS [None]
  - STRESS [None]
  - DIARRHOEA [None]
  - CONTUSION [None]
  - ERYTHEMA [None]
  - LETHARGY [None]
  - FIBROMYALGIA [None]
  - SYNCOPE [None]
  - BACK PAIN [None]
  - RHINITIS [None]
  - MUCOUS STOOLS [None]
  - CONDITION AGGRAVATED [None]
  - GRUNTING [None]
  - HYPOTHYROIDISM [None]
  - GASTROOESOPHAGEAL REFLUX DISEASE [None]
  - HEADACHE [None]
  - SELF INJURIOUS BEHAVIOUR [None]
  - MEMORY IMPAIRMENT [None]
  - OEDEMA PERIPHERAL [None]
  - SWOLLEN TONGUE [None]
  - VIRAL INFECTION [None]
  - DRUG DEPENDENCE [None]
  - HYPERACUSIS [None]
  - AFFECTIVE DISORDER [None]
  - DRY EYE [None]
  - INFLUENZA [None]
  - UPPER-AIRWAY COUGH SYNDROME [None]
  - DYSARTHRIA [None]
  - GASTROINTESTINAL PAIN [None]
  - FOOD CRAVING [None]
  - FREQUENT BOWEL MOVEMENTS [None]
  - ARTHRITIS [None]
  - ILEUS [None]
  - ENDOSCOPY SMALL INTESTINE ABNORMAL [None]
  - MULTIPLE INJURIES [None]
  - CROHN'S DISEASE [None]
  - LACRIMATION INCREASED [None]
  - VASCULITIS [None]
  - GLOSSODYNIA [None]
  - NECK PAIN [None]
  - MYOSITIS [None]
  - NASAL ULCER [None]
  - LIP ULCERATION [None]
  - HAEMORRHOIDS [None]
